FAERS Safety Report 4273197-4 (Version None)
Quarter: 2004Q1

REPORT INFORMATION
  Report Type: 
  Country: None (occurrence: None)
  Receive Date: 20040116
  Receipt Date: 20040108
  Transmission Date: 20041129
  Serious: Yes (Other)
  Sender: FDA-Public Use
  Company Number: PHBS2004BE00761

PATIENT
  Age: 72 Year
  Sex: Male

DRUGS (8)
  1. ZOMETA [Suspect]
     Indication: METASTASES TO BONE
     Dosage: 4 MG EVERY 4 WEEKS
     Route: 065
     Dates: start: 20020721, end: 20031107
  2. SINTROM [Concomitant]
  3. THALIDOMIDE [Concomitant]
  4. DEXAMETHASONE [Concomitant]
  5. THYROXINE [Concomitant]
  6. ARANESP [Concomitant]
  7. CORVATARD [Concomitant]
  8. AREDIA [Suspect]
     Route: 065
     Dates: start: 20031205

REACTIONS (2)
  - MYELOMA RECURRENCE [None]
  - NEPHRITIS INTERSTITIAL [None]
